FAERS Safety Report 11346495 (Version 1)
Quarter: 2015Q3

REPORT INFORMATION
  Report Type: Spontaneous
  Country: US (occurrence: US)
  Receive Date: 20150803
  Receipt Date: 20150803
  Transmission Date: 20151125
  Serious: No
  Sender: FDA-Public Use
  Company Number: US-ELI_LILLY_AND_COMPANY-US201010006198

PATIENT
  Age: 58 Year
  Sex: Male

DRUGS (3)
  1. ZYPREXA [Suspect]
     Active Substance: OLANZAPINE
     Indication: BIPOLAR DISORDER
     Dosage: UNK, UNK
     Dates: start: 2008
  2. DEPAKOTE [Concomitant]
     Active Substance: DIVALPROEX SODIUM
  3. ZYPREXA [Suspect]
     Active Substance: OLANZAPINE
     Dosage: 5 MG, DAILY (1/D)
     Dates: start: 201009, end: 201010

REACTIONS (11)
  - Drug ineffective [Unknown]
  - Anxiety [Unknown]
  - Vitreous floaters [Not Recovered/Not Resolved]
  - Dry mouth [Unknown]
  - Thirst [Unknown]
  - Blood cholesterol increased [Unknown]
  - Tremor [Unknown]
  - Pressure of speech [Not Recovered/Not Resolved]
  - Dysphonia [Not Recovered/Not Resolved]
  - Agitation [Unknown]
  - Hunger [Unknown]
